FAERS Safety Report 12659303 (Version 1)
Quarter: 2016Q3

REPORT INFORMATION
  Report Type: Spontaneous
  Country: US (occurrence: US)
  Receive Date: 20160817
  Receipt Date: 20160817
  Transmission Date: 20161109
  Serious: Yes (Other)
  Sender: FDA-Public Use
  Company Number: US-BAYER-2016-159975

PATIENT
  Sex: Female

DRUGS (2)
  1. ALEVE [Suspect]
     Active Substance: NAPROXEN SODIUM
     Indication: ARTHRALGIA
     Dosage: PRN (TAKE IT WHENEVER NEEDED)
  2. ALEVE [Suspect]
     Active Substance: NAPROXEN SODIUM
     Indication: HEADACHE
     Dosage: UNK UNK, ONCE
     Route: 048
     Dates: start: 20160816, end: 20160816

REACTIONS (3)
  - Choking [Recovered/Resolved]
  - Wrong technique in product usage process [None]
  - Product difficult to swallow [None]

NARRATIVE: CASE EVENT DATE: 20160816
